FAERS Safety Report 7428882-X (Version None)
Quarter: 2011Q2

REPORT INFORMATION
  Report Type: 
  Country: None (occurrence: None)
  Receive Date: 20110421
  Receipt Date: 20110418
  Transmission Date: 20111010
  Serious: Yes (Other)
  Sender: FDA-Public Use
  Company Number: US-AMGEN-QUU405675

PATIENT
  Age: 34 Year
  Sex: Female
  Weight: 90 kg

DRUGS (11)
  1. NPLATE [Suspect]
     Indication: IDIOPATHIC THROMBOCYTOPENIC PURPURA
     Dosage: 6 A?G/KG, UNK
     Dates: start: 20090123, end: 20100302
  2. DEXAMETHASONE [Concomitant]
     Dosage: 40 MG, UNK
     Route: 042
     Dates: start: 20100302, end: 20100310
  3. RITUXIMAB [Concomitant]
     Dosage: 375 MG/M2, UNK
     Dates: start: 20090102, end: 20090109
  4. DIPHENHYDRAMINE HCL [Concomitant]
     Dosage: 25 MG, PRN
     Route: 048
  5. CORTICOSTEROID NOS [Concomitant]
     Dosage: UNK UNK, UNK
     Dates: start: 20081118
  6. HYDROXYCHLOROQUINE SULFATE [Concomitant]
     Dosage: 200 MG, BID
     Route: 048
  7. PREGABALIN [Concomitant]
     Dosage: 150 MG, BID
     Route: 048
  8. LOTREL [Concomitant]
     Dosage: UNK UNK, QD
     Route: 048
  9. TRAMADOL HCL [Concomitant]
     Dosage: 300 MG, QD
     Route: 048
  10. IBUPROFEN [Concomitant]
     Dosage: 200 MG, PRN
     Route: 048
  11. OMEPRAZOLE [Concomitant]
     Dosage: 40 MG, QD
     Route: 048

REACTIONS (10)
  - SINUS CONGESTION [None]
  - BONE PAIN [None]
  - FATIGUE [None]
  - RASH [None]
  - HERPES ZOSTER [None]
  - THROMBOCYTOPENIA [None]
  - THERAPEUTIC RESPONSE DECREASED [None]
  - CONTUSION [None]
  - PAIN [None]
  - PARAESTHESIA [None]
